FAERS Safety Report 8298177-3 (Version None)
Quarter: 2012Q2

REPORT INFORMATION
  Report Type: 
  Country: None (occurrence: None)
  Receive Date: 20120419
  Receipt Date: 20120320
  Transmission Date: 20120825
  Serious: Yes (Death, Hospitalization)
  Sender: FDA-Public Use
  Company Number: US-BRISTOL-MYERS SQUIBB COMPANY-16466070

PATIENT
  Age: 78 Year
  Sex: Male
  Weight: 63 kg

DRUGS (1)
  1. YERVOY [Suspect]
     Indication: MALIGNANT MELANOMA
     Dosage: ANOTHER TREATMENT ON 24JAN2012,22FEB12
     Dates: start: 20111228

REACTIONS (5)
  - DEATH [None]
  - HEART RATE INCREASED [None]
  - ASTHENIA [None]
  - HYPOPHAGIA [None]
  - DIARRHOEA [None]
